FAERS Safety Report 16483922 (Version 2)
Quarter: 2019Q3

REPORT INFORMATION
  Report Type: Spontaneous
  Country: CN (occurrence: CN)
  Receive Date: 20190627
  Receipt Date: 20190702
  Transmission Date: 20191004
  Serious: Yes (Death, Other)
  Sender: FDA-Public Use
  Company Number: CN-BAYER-2019-122421

PATIENT
  Age: 41 Year
  Sex: Female

DRUGS (2)
  1. GADOVIST [Suspect]
     Active Substance: GADOBUTROL
     Indication: BREAST CANCER
  2. GADOVIST [Suspect]
     Active Substance: GADOBUTROL
     Indication: SCAN WITH CONTRAST
     Dosage: 6.5 ML, ONCE
     Dates: start: 20190626, end: 20190626

REACTIONS (4)
  - Cardiac arrest [Recovered/Resolved]
  - Contrast media allergy [None]
  - Coma [None]
  - Death [Fatal]

NARRATIVE: CASE EVENT DATE: 20190626
